FAERS Safety Report 9378248 (Version 1)
Quarter: 2013Q3

REPORT INFORMATION
  Report Type: Spontaneous
  Country: US (occurrence: US)
  Receive Date: 20130701
  Receipt Date: 20130701
  Transmission Date: 20140515
  Serious: No
  Sender: FDA-Public Use
  Company Number: US-009507513-1306USA004032

PATIENT
  Age: 30 Year
  Sex: Female
  Weight: 77.55 kg

DRUGS (1)
  1. NUVARING [Suspect]
     Indication: CONTRACEPTION
     Dosage: ONE RING
     Route: 067
     Dates: start: 2007

REACTIONS (2)
  - Device expulsion [Unknown]
  - No adverse event [Unknown]
